FAERS Safety Report 4851438-X (Version None)
Quarter: 2005Q4

REPORT INFORMATION
  Report Type: 
  Country: None (occurrence: None)
  Receive Date: 20051208
  Receipt Date: 20051206
  Transmission Date: 20060501
  Serious: Yes (Death)
  Sender: FDA-Public Use
  Company Number: TCI2005A04937

PATIENT
  Age: 75 Year
  Sex: Female

DRUGS (1)
  1. LANSOPRAZOLE [Suspect]
     Indication: REFLUX OESOPHAGITIS
     Dosage: 15 MG (15 MG, 1 IN 1 D), PER ORAL
     Route: 048
     Dates: start: 20050901, end: 20051016

REACTIONS (1)
  - RUPTURED CEREBRAL ANEURYSM [None]
